FAERS Safety Report 6305218-9 (Version None)
Quarter: 2009Q3

REPORT INFORMATION
  Report Type: 
  Country: None (occurrence: None)
  Receive Date: 20090811
  Receipt Date: 20090731
  Transmission Date: 20100115
  Serious: Yes (Hospitalization)
  Sender: FDA-Public Use
  Company Number: JP-AVENTIS-200912167JP

PATIENT
  Age: 79 Year
  Sex: Female
  Weight: 53.1 kg

DRUGS (2)
  1. CLEXANE [Suspect]
     Route: 058
     Dates: start: 20081130, end: 20081209
  2. FARESTON                           /00828101/ [Concomitant]
     Route: 048

REACTIONS (2)
  - IMPAIRED HEALING [None]
  - POST PROCEDURAL HAEMORRHAGE [None]
